FAERS Safety Report 18172986 (Version 4)
Quarter: 2020Q4

REPORT INFORMATION
  Report Type: Spontaneous
  Country: DE (occurrence: DE)
  Receive Date: 20200819
  Receipt Date: 20201008
  Transmission Date: 20210113
  Serious: Yes (Death, Hospitalization, Other)
  Sender: FDA-Public Use
  Company Number: DE-PFIZER INC-2020321666

PATIENT
  Age: 64 Year
  Sex: Female
  Weight: 120 kg

DRUGS (2)
  1. METAMIZOL [Suspect]
     Active Substance: METAMIZOLE SODIUM
     Indication: PAIN
     Dosage: 1 G, 1-3X/DAY
     Route: 048
     Dates: end: 202005
  2. METHOTREXATE SODIUM. [Suspect]
     Active Substance: METHOTREXATE SODIUM
     Indication: RHEUMATOID ARTHRITIS
     Dosage: 25 MG, WEEKLY
     Route: 058
     Dates: start: 201904, end: 20200527

REACTIONS (14)
  - Sepsis [Fatal]
  - Multiple organ dysfunction syndrome [Fatal]
  - Klebsiella infection [Unknown]
  - Metabolic encephalopathy [Unknown]
  - Drug titration error [Fatal]
  - Pancytopenia [Fatal]
  - Acute kidney injury [Unknown]
  - Gastroduodenal ulcer [Unknown]
  - Product monitoring error [Fatal]
  - Atrial fibrillation [Unknown]
  - Urinary tract infection [Unknown]
  - Rectal ulcer [Unknown]
  - Immunosuppressant drug level increased [Fatal]
  - Myelosuppression [Fatal]

NARRATIVE: CASE EVENT DATE: 202005
